FAERS Safety Report 14725611 (Version 2)
Quarter: 2018Q2

REPORT INFORMATION
  Report Type: Report from Study
  Country: JP (occurrence: JP)
  Receive Date: 20180406
  Receipt Date: 20180410
  Transmission Date: 20180711
  Serious: Yes (Other)
  Sender: FDA-Public Use
  Company Number: JP-AMGEN-JPNCT2016054478

PATIENT
  Sex: Male
  Weight: 67.6 kg

DRUGS (20)
  1. FLUOROURACIL. [Concomitant]
     Active Substance: FLUOROURACIL
     Dosage: 200 MG/M2, Q2WK
     Route: 040
     Dates: start: 20151023, end: 20151218
  2. FLUOROURACIL. [Concomitant]
     Active Substance: FLUOROURACIL
     Dosage: 200 MG/M2, Q2WK
     Route: 040
     Dates: start: 20160115, end: 20160408
  3. FLUOROURACIL. [Concomitant]
     Active Substance: FLUOROURACIL
     Dosage: 2000 MG/M2, Q2WK
     Route: 041
     Dates: start: 20160115, end: 20160408
  4. FLUOROURACIL. [Concomitant]
     Active Substance: FLUOROURACIL
     Dosage: UNK
     Route: 040
     Dates: start: 20161216, end: 20180209
  5. CALCIUM LEVOFOLINATE [Concomitant]
     Active Substance: LEVOLEUCOVORIN CALCIUM
     Indication: RECTOSIGMOID CANCER
     Dosage: 350 MG, Q2WEEKS
     Route: 041
     Dates: start: 20150911, end: 20151009
  6. FLUOROURACIL. [Concomitant]
     Active Substance: FLUOROURACIL
     Dosage: 2000 MG/M2, Q2WK
     Route: 041
     Dates: start: 20151023, end: 20151218
  7. PANITUMUMAB [Suspect]
     Active Substance: PANITUMUMAB
     Indication: RECTOSIGMOID CANCER
     Dosage: 400 MG, Q2WK
     Route: 041
     Dates: start: 20150911, end: 20151218
  8. OXALIPLATIN. [Concomitant]
     Active Substance: OXALIPLATIN
     Indication: RECTOSIGMOID CANCER
     Dosage: 140 MG, Q2WEEKS
     Route: 041
     Dates: start: 20150911, end: 20151009
  9. CALCIUM LEVOFOLINATE [Concomitant]
     Active Substance: LEVOLEUCOVORIN CALCIUM
     Dosage: UNK UNK, Q2WEEKS
     Route: 041
     Dates: start: 20160115, end: 20160408
  10. FLUOROURACIL. [Concomitant]
     Active Substance: FLUOROURACIL
     Dosage: 4200 MG, Q2WK
     Route: 041
     Dates: start: 20150911, end: 20151009
  11. PANITUMUMAB [Suspect]
     Active Substance: PANITUMUMAB
     Dosage: 4.8 MG/KG, UNK
     Route: 041
     Dates: start: 20160603, end: 20161007
  12. OXALIPLATIN. [Concomitant]
     Active Substance: OXALIPLATIN
     Dosage: 65 MG/M2, Q2WEEKS
     Route: 041
     Dates: start: 20160115, end: 20160226
  13. CALCIUM LEVOFOLINATE [Concomitant]
     Active Substance: LEVOLEUCOVORIN CALCIUM
     Dosage: UNK UNK, Q2WEEKS
     Route: 041
     Dates: start: 20151023, end: 20151218
  14. FLUOROURACIL. [Concomitant]
     Active Substance: FLUOROURACIL
     Dosage: UNK
     Route: 041
     Dates: start: 20161216, end: 20180209
  15. FLUOROURACIL. [Concomitant]
     Active Substance: FLUOROURACIL
     Indication: RECTOSIGMOID CANCER
     Dosage: 700 MG, Q2WK
     Route: 040
     Dates: start: 20150911, end: 20151009
  16. FLUOROURACIL. [Concomitant]
     Active Substance: FLUOROURACIL
     Dosage: 2000 MG/M2, Q2WK
     Route: 041
     Dates: start: 20160506, end: 20161125
  17. PANITUMUMAB [Suspect]
     Active Substance: PANITUMUMAB
     Dosage: 400 MG, Q2WK
     Route: 041
     Dates: start: 20160115, end: 20160408
  18. OXALIPLATIN. [Concomitant]
     Active Substance: OXALIPLATIN
     Dosage: 65 MG/M2, Q2WEEKS
     Route: 041
     Dates: start: 20151023, end: 20151218
  19. CALCIUM LEVOFOLINATE [Concomitant]
     Active Substance: LEVOLEUCOVORIN CALCIUM
     Dosage: UNK, Q2WEEKS
     Route: 041
     Dates: start: 20160506, end: 20161125
  20. FLUOROURACIL. [Concomitant]
     Active Substance: FLUOROURACIL
     Dosage: 200 MG/M2, Q2WK
     Route: 040
     Dates: start: 20160506, end: 20161125

REACTIONS (17)
  - Malaise [Recovered/Resolved]
  - Palpitations [Recovered/Resolved]
  - Dysgeusia [Recovered/Resolved]
  - Vertigo [Recovered/Resolved]
  - Peripheral sensory neuropathy [Not Recovered/Not Resolved]
  - Neutrophil count decreased [Unknown]
  - Aspartate aminotransferase increased [Recovered/Resolved]
  - Dry skin [Unknown]
  - Malaise [Unknown]
  - Anaemia [Not Recovered/Not Resolved]
  - Embolism [Unknown]
  - Paronychia [Recovered/Resolved]
  - Dermatitis acneiform [Not Recovered/Not Resolved]
  - Angiopathy [Recovered/Resolved]
  - Hyperkalaemia [Recovered/Resolved]
  - Fatigue [Unknown]
  - Hypomagnesaemia [Recovered/Resolved]
